FAERS Safety Report 17337800 (Version 1)
Quarter: 2020Q1

REPORT INFORMATION
  Report Type: Spontaneous
  Country: CA (occurrence: CA)
  Receive Date: 20200129
  Receipt Date: 20200129
  Transmission Date: 20200409
  Serious: Yes (Other)
  Sender: FDA-Public Use
  Company Number: CA-TEVA-2020-CA-1176253

PATIENT
  Age: 83 Year
  Sex: Female

DRUGS (14)
  1. ATORVASTATIN [Concomitant]
     Active Substance: ATORVASTATIN
  2. ESCITALOPRAM [Concomitant]
     Active Substance: ESCITALOPRAM OXALATE
  3. ZOPICLONE [Concomitant]
     Active Substance: ZOPICLONE
  4. MACROGOL 3350 [Suspect]
     Active Substance: POLYETHYLENE GLYCOL 3350
     Indication: PRODUCT USED FOR UNKNOWN INDICATION
     Route: 065
  5. PANTOPRAZOLE [Concomitant]
     Active Substance: PANTOPRAZOLE
  6. METOPROLOL. [Concomitant]
     Active Substance: METOPROLOL
     Dosage: 100 MILLIGRAM DAILY;
     Route: 065
  7. ACETAMINOPHEN. [Concomitant]
     Active Substance: ACETAMINOPHEN
  8. FUROSEMIDE INJ USP [Concomitant]
     Active Substance: FUROSEMIDE
     Route: 065
  9. AMLODIPINE BESILATE [Suspect]
     Active Substance: AMLODIPINE BESYLATE
     Indication: PRODUCT USED FOR UNKNOWN INDICATION
     Dosage: 10 MILLIGRAM DAILY;
     Route: 065
  10. NITROGLYCERIN. [Suspect]
     Active Substance: NITROGLYCERIN
     Indication: PRODUCT USED FOR UNKNOWN INDICATION
     Route: 065
  11. OXAZEPAM. [Concomitant]
     Active Substance: OXAZEPAM
  12. RAMIPRIL. [Concomitant]
     Active Substance: RAMIPRIL
  13. VITAMIN D [Concomitant]
     Active Substance: VITAMIN D NOS
  14. CLOPIDOGREL [Concomitant]
     Active Substance: CLOPIDOGREL BISULFATE

REACTIONS (5)
  - Bradycardia [Unknown]
  - Oedema peripheral [Unknown]
  - Dizziness [Unknown]
  - Fall [Unknown]
  - Hypotension [Unknown]
